FAERS Safety Report 7617341-7 (Version None)
Quarter: 2011Q3

REPORT INFORMATION
  Report Type: 
  Country: None (occurrence: None)
  Receive Date: 20110718
  Receipt Date: 20110714
  Transmission Date: 20111222
  Serious: Yes (Death, Hospitalization)
  Sender: FDA-Public Use
  Company Number: PHHY2011US30778

PATIENT
  Sex: Female
  Weight: 62 kg

DRUGS (2)
  1. EXJADE [Suspect]
     Indication: MYELODYSPLASTIC SYNDROME
     Dosage: 500 MG, DAILY
     Route: 048
     Dates: start: 20090101, end: 20110501
  2. EXJADE [Suspect]
     Dosage: 500 MG, DAILY
     Route: 048
     Dates: end: 20110501

REACTIONS (5)
  - DEATH [None]
  - GENERAL PHYSICAL HEALTH DETERIORATION [None]
  - SPEECH DISORDER [None]
  - NAUSEA [None]
  - GASTRITIS [None]
